FAERS Safety Report 10103830 (Version 1)
Quarter: 2014Q2

REPORT INFORMATION
  Report Type: Spontaneous
  Country: GB (occurrence: GB)
  Receive Date: 20140424
  Receipt Date: 20140424
  Transmission Date: 20141212
  Serious: Yes (Other)
  Sender: FDA-Public Use
  Company Number: GB-MYLANLABS-2014S1008582

PATIENT
  Age: 75 Year
  Sex: Female
  Weight: 88 kg

DRUGS (20)
  1. MINOCYCLINE [Suspect]
     Indication: PYODERMA GANGRENOSUM
     Dates: start: 20131219
  2. ALENDRONIC ACID [Concomitant]
     Dates: start: 20131206, end: 20140325
  3. BISOPROLOL [Concomitant]
     Dates: start: 20131206, end: 20140325
  4. BUMETANIDE [Concomitant]
     Dates: start: 20131206, end: 20140325
  5. CALCIUM CARBONATE [Concomitant]
     Dates: start: 20131206, end: 20140325
  6. CANDESARTAN [Concomitant]
     Dates: start: 20140225, end: 20140325
  7. CLOPIDOGREL [Concomitant]
     Dates: start: 20131206, end: 20140315
  8. EMOLLIENTS AND PROTECTIVES [Concomitant]
     Dates: start: 20140225, end: 20140307
  9. FUROSEMIDE [Concomitant]
     Dates: start: 20140109, end: 20140213
  10. GABAPENTIN [Concomitant]
     Dates: start: 20131206, end: 20140325
  11. ISOSORBIDE MONONITRATE [Concomitant]
     Dates: start: 20131206, end: 20140325
  12. MYCOPHENOLATE MOFETIL [Concomitant]
     Dates: start: 20140225, end: 20140325
  13. OMEPRAZOLE [Concomitant]
     Dates: start: 20131206, end: 20140325
  14. PREDNISOLONE [Concomitant]
     Dates: start: 20131206, end: 20140325
  15. RAMIPRIL [Concomitant]
     Dates: start: 20131206, end: 20140103
  16. RIVAROXABAN [Concomitant]
     Dates: start: 20140225, end: 20140325
  17. SALBUTAMOL [Concomitant]
     Dates: start: 20131206, end: 20140103
  18. SIMVASTATIN [Concomitant]
     Dates: start: 20131206, end: 20140325
  19. SPIRONOLACTONE [Concomitant]
     Dates: start: 20131206, end: 20140325
  20. WARFARIN SODIUM [Concomitant]
     Dates: start: 20131206, end: 20140213

REACTIONS (2)
  - Pyoderma gangrenosum [Recovering/Resolving]
  - Condition aggravated [Recovering/Resolving]
